FAERS Safety Report 5467446-4 (Version None)
Quarter: 2007Q3

REPORT INFORMATION
  Report Type: 
  Country: None (occurrence: None)
  Receive Date: 20070925
  Receipt Date: 20070921
  Transmission Date: 20080115
  Serious: Yes (Life-Threatening, Hospitalization, Other)
  Sender: FDA-Public Use
  Company Number: US-SHR-US-2007-033578

PATIENT
  Age: 70 Year
  Sex: Female
  Weight: 67 kg

DRUGS (1)
  1. MAGNEVIST [Suspect]
     Dosage: 14 ML, 1 DOSE
     Route: 042
     Dates: start: 20070828, end: 20070828

REACTIONS (4)
  - ANAPHYLACTIC SHOCK [None]
  - DYSGEUSIA [None]
  - FEELING HOT [None]
  - PARAESTHESIA [None]
